FAERS Safety Report 20734359 (Version 1)
Quarter: 2022Q2

REPORT INFORMATION
  Report Type: Spontaneous
  Country: ES (occurrence: ES)
  Receive Date: 20220421
  Receipt Date: 20220421
  Transmission Date: 20220721
  Serious: Yes (Death, Hospitalization, Other)
  Sender: FDA-Public Use
  Company Number: ES-STRIDES ARCOLAB LIMITED-2022SP004044

PATIENT
  Age: 14 Year
  Sex: Female

DRUGS (4)
  1. MYCOPHENOLATE MOFETIL [Suspect]
     Active Substance: MYCOPHENOLATE MOFETIL
     Indication: Allogenic stem cell transplantation
     Dosage: UNK
     Route: 065
  2. ACYCLOVIR [Suspect]
     Active Substance: ACYCLOVIR
     Indication: Prophylaxis
     Dosage: UNK
     Route: 065
  3. ACYCLOVIR [Suspect]
     Active Substance: ACYCLOVIR
     Indication: BK virus infection
  4. ACYCLOVIR [Suspect]
     Active Substance: ACYCLOVIR
     Indication: Respiratory syncytial virus infection

REACTIONS (8)
  - Thrombotic microangiopathy [Fatal]
  - Pulmonary oedema [Fatal]
  - Cardiogenic shock [Fatal]
  - Pulmonary hypertension [Unknown]
  - Graft versus host disease in skin [Unknown]
  - BK virus infection [Unknown]
  - Respiratory syncytial virus infection [Unknown]
  - Off label use [Unknown]
